FAERS Safety Report 5454431-1 (Version None)
Quarter: 2007Q3

REPORT INFORMATION
  Report Type: 
  Country: None (occurrence: None)
  Receive Date: 20070917
  Receipt Date: 20060831
  Transmission Date: 20080115
  Serious: Yes (Hospitalization)
  Sender: FDA-Public Use
  Company Number: US-ASTRAZENECA-2006UW17288

PATIENT
  Age: 53 Year
  Sex: Male

DRUGS (3)
  1. SEROQUEL [Suspect]
     Route: 048
     Dates: end: 20060829
  2. ZOLOFT [Concomitant]
     Route: 048
  3. COGENTIN [Concomitant]
     Route: 048

REACTIONS (1)
  - ARRHYTHMIA [None]
